FAERS Safety Report 16795168 (Version 2)
Quarter: 2019Q3

REPORT INFORMATION
  Report Type: Spontaneous
  Country: PL (occurrence: PL)
  Receive Date: 20190911
  Receipt Date: 20190925
  Transmission Date: 20191005
  Serious: Yes (Death, Other)
  Sender: FDA-Public Use
  Company Number: PL-MYLANLABS-2019M1084886

PATIENT
  Age: 37 Year
  Sex: Male

DRUGS (7)
  1. TERLIPRESSIN [Concomitant]
     Active Substance: TERLIPRESSIN
     Indication: HEPATORENAL SYNDROME
     Dosage: UNK
     Route: 065
  2. METRONIDAZOLE. [Suspect]
     Active Substance: METRONIDAZOLE
     Indication: SEPSIS
     Dosage: UNK
     Route: 065
  3. DOBUTAMINE [Suspect]
     Active Substance: DOBUTAMINE HYDROCHLORIDE
     Indication: INFLAMMATION
     Dosage: UNK
     Route: 065
  4. NOREPINEPHRINE. [Suspect]
     Active Substance: NOREPINEPHRINE
     Indication: INFLAMMATION
     Dosage: UNK
     Route: 065
  5. VANCOMYCIN [Suspect]
     Active Substance: VANCOMYCIN
     Indication: SEPSIS
     Dosage: UNK
     Route: 065
  6. IMIPENEM [Suspect]
     Active Substance: IMIPENEM
     Indication: SEPSIS
     Dosage: UNK
     Route: 065
  7. CIPROFLOXACIN. [Suspect]
     Active Substance: CIPROFLOXACIN
     Indication: SEPSIS
     Dosage: UNK
     Route: 065

REACTIONS (24)
  - Antineutrophil cytoplasmic antibody [Unknown]
  - Intussusception [Unknown]
  - Ascites [Unknown]
  - Candida infection [Unknown]
  - Systemic lupus erythematosus [Unknown]
  - Hepato-lenticular degeneration [Unknown]
  - Anuria [Unknown]
  - Inflammation [Unknown]
  - Diarrhoea [Unknown]
  - Cytomegalovirus infection [Unknown]
  - Haemochromatosis [Unknown]
  - HIV infection [Unknown]
  - Leukaemia [Unknown]
  - Epstein-Barr virus infection [Unknown]
  - Sepsis [Fatal]
  - Hepatitis B [Unknown]
  - Hepatitis C [Unknown]
  - Appendicitis [Unknown]
  - Penile necrosis [Unknown]
  - Klebsiella infection [Unknown]
  - Staphylococcal sepsis [Unknown]
  - Stenosis [Unknown]
  - Necrosis [Unknown]
  - Vasculitis [Unknown]
